FAERS Safety Report 14884647 (Version 1)
Quarter: 2018Q2

REPORT INFORMATION
  Report Type: Spontaneous
  Country: US (occurrence: US)
  Receive Date: 20180511
  Receipt Date: 20180511
  Transmission Date: 20180711
  Serious: Yes (Other)
  Sender: FDA-Public Use
  Company Number: US-GLAXOSMITHKLINE-US2018081092

PATIENT

DRUGS (1)
  1. EXCEDRIN TENSION HEADACHE [Suspect]
     Active Substance: ACETAMINOPHEN\CAFFEINE
     Indication: HEADACHE
     Dosage: 4 DF, UNK

REACTIONS (4)
  - Drug ineffective [Unknown]
  - Extra dose administered [Unknown]
  - Drug dependence [Not Recovered/Not Resolved]
  - Liver disorder [Unknown]
